FAERS Safety Report 7110915-1 (Version None)
Quarter: 2010Q4

REPORT INFORMATION
  Report Type: 
  Country: None (occurrence: None)
  Receive Date: 20101118
  Receipt Date: 20101109
  Transmission Date: 20110411
  Serious: Yes (Life-Threatening, Hospitalization, Other)
  Sender: FDA-Public Use
  Company Number: US-PERRIGO-10US012655

PATIENT
  Sex: Male
  Weight: 102.95 kg

DRUGS (7)
  1. NAPROXEN [Suspect]
     Indication: SPONDYLITIS
     Dosage: 220 MG, QD, PRN
     Route: 048
     Dates: end: 20090805
  2. ASPIRIN [Suspect]
     Indication: CARDIOVASCULAR EVENT PROPHYLAXIS
     Dosage: 325 MG, QD
     Route: 048
  3. METFORMIN HCL [Concomitant]
     Indication: DIABETES MELLITUS
     Dosage: 500 MG, BID
     Route: 048
  4. NORVASC [Concomitant]
     Indication: HYPERTENSION
     Dosage: 10 MG, QD
     Route: 048
     Dates: start: 20040903
  5. XANAX [Concomitant]
     Indication: ANXIETY
     Dosage: 0.5 MG, Q8-12H
     Route: 048
     Dates: start: 20000101
  6. VICODIN ES [Concomitant]
     Indication: PAIN
     Dosage: 1 TABLET, Q8-12H
     Route: 048
     Dates: start: 20000101
  7. BUMEX [Concomitant]
     Indication: FLUID RETENTION
     Dosage: 1 MG, QD
     Route: 048

REACTIONS (11)
  - ANAEMIA [None]
  - DUODENAL ULCER HAEMORRHAGE [None]
  - FLASHBACK [None]
  - HAEMATEMESIS [None]
  - HYPOVOLAEMIC SHOCK [None]
  - INTESTINAL PERFORATION [None]
  - MALAISE [None]
  - NAUSEA [None]
  - PAIN [None]
  - UPPER GASTROINTESTINAL HAEMORRHAGE [None]
  - VOMITING PROJECTILE [None]
